FAERS Safety Report 9958918 (Version 2)
Quarter: 2014Q1

REPORT INFORMATION
  Report Type: Report from Study
  Country: US (occurrence: US)
  Receive Date: 20140305
  Receipt Date: 20140305
  Transmission Date: 20141002
  Serious: No
  Sender: FDA-Public Use
  Company Number: US-ABBVIE-13P-163-1082047-00

PATIENT
  Age: 37 Year
  Sex: Female

DRUGS (5)
  1. HUMIRA [Suspect]
     Indication: COLITIS ULCERATIVE
     Dates: start: 20130126
  2. ASACOL [Concomitant]
     Indication: COLITIS ULCERATIVE
  3. MULTIVITAMIN [Concomitant]
     Indication: PRODUCT USED FOR UNKNOWN INDICATION
     Dosage: DAILY
  4. FLONASE [Concomitant]
     Indication: HYPERSENSITIVITY
     Dosage: DAILY
     Route: 045
  5. WYMZYA FE [Concomitant]
     Indication: CONTRACEPTION
     Dosage: DAILY

REACTIONS (2)
  - Injection site pruritus [Not Recovered/Not Resolved]
  - Injection site erythema [Not Recovered/Not Resolved]
